FAERS Safety Report 8787478 (Version 4)
Quarter: 2016Q3

REPORT INFORMATION
  Report Type: Spontaneous
  Country: US (occurrence: US)
  Receive Date: 20120914
  Receipt Date: 20160707
  Transmission Date: 20161109
  Serious: No
  Sender: FDA-Public Use
  Company Number: US-VERTEX PHARMACEUTICAL INC.-AE-2012-009998

PATIENT
  Age: 45 Year
  Sex: Male
  Weight: 91 kg

DRUGS (13)
  1. WARFARIN [Interacting]
     Active Substance: WARFARIN
     Dosage: 6 MG, QD
     Route: 065
     Dates: start: 201101, end: 20110909
  2. WARFARIN [Interacting]
     Active Substance: WARFARIN
     Dosage: 9 MG, QD
     Route: 065
     Dates: start: 201110, end: 20111202
  3. RIBAVIRIN. [Concomitant]
     Active Substance: RIBAVIRIN
     Indication: HEPATITIS C
     Dosage: 600 MG, BID WITH FOOD
     Route: 065
     Dates: start: 20110907
  4. METOPROLOL TARTRATE. [Concomitant]
     Active Substance: METOPROLOL TARTRATE
     Dosage: 25 MG, BID
     Route: 065
  5. PEGINTERFERON ALFA-2A [Concomitant]
     Active Substance: PEGINTERFERON ALFA-2A
     Indication: HEPATITIS C
     Dosage: 180 UNITS WITH FOOD
     Route: 065
     Dates: start: 20110907
  6. VITAMIN K [Concomitant]
     Active Substance: PHYTONADIONE
     Dosage: UNK
     Route: 065
  7. ENALAPRIL [Concomitant]
     Active Substance: ENALAPRIL
     Dosage: 5 MG, QD
     Route: 065
  8. INCIVEK [Suspect]
     Active Substance: TELAPREVIR
     Indication: HEPATITIS C
     Dosage: 750 MG, TID
     Route: 048
     Dates: start: 20110907, end: 20111129
  9. WARFARIN [Interacting]
     Active Substance: WARFARIN
     Indication: PRODUCT USED FOR UNKNOWN INDICATION
     Dosage: 7.5 MG, QD
     Route: 065
     Dates: start: 20111202, end: 201112
  10. WARFARIN [Interacting]
     Active Substance: WARFARIN
     Dosage: 7 MG, QD
     Route: 065
     Dates: start: 201112
  11. ASPIRIN. [Concomitant]
     Active Substance: ASPIRIN
     Dosage: 81 MG, QD
     Route: 065
  12. WARFARIN [Interacting]
     Active Substance: WARFARIN
     Dosage: 6 MG, QD
     Route: 065
     Dates: start: 20110921, end: 201109
  13. WARFARIN [Interacting]
     Active Substance: WARFARIN
     Dosage: 5 MG, QD
     Route: 065
     Dates: start: 20110914, end: 20110920

REACTIONS (2)
  - Drug interaction [Unknown]
  - International normalised ratio fluctuation [Recovered/Resolved]

NARRATIVE: CASE EVENT DATE: 20110909
